FAERS Safety Report 12728414 (Version 1)
Quarter: 2016Q3

REPORT INFORMATION
  Report Type: Spontaneous
  Country: US (occurrence: US)
  Receive Date: 20160907
  Receipt Date: 20160907
  Transmission Date: 20161109
  Serious: No
  Sender: FDA-Public Use
  Company Number: None

PATIENT
  Sex: Male

DRUGS (2)
  1. BENADRYL [Concomitant]
     Active Substance: DIPHENHYDRAMINE HYDROCHLORIDE
  2. RECLAST [Suspect]
     Active Substance: ZOLEDRONIC ACID

REACTIONS (1)
  - Pruritus [None]

NARRATIVE: CASE EVENT DATE: 20160901
